FAERS Safety Report 6585996-4 (Version None)
Quarter: 2010Q1

REPORT INFORMATION
  Report Type: 
  Country: None (occurrence: None)
  Receive Date: 20100216
  Receipt Date: 20100216
  Transmission Date: 20100710
  Serious: Yes (Life-Threatening, Hospitalization)
  Sender: FDA-Public Use
  Company Number: None

PATIENT
  Age: 61 Year
  Sex: Male
  Weight: 83 kg

DRUGS (3)
  1. SULFAMETHOXAZOLE AND TRIMETHOPRIM [Suspect]
     Indication: URINARY TRACT INFECTION
     Dosage: 800/160 MG BID PO
     Route: 048
     Dates: start: 20091217, end: 20091222
  2. NAFCILLIN [Suspect]
     Indication: ENDOCARDITIS
     Dosage: 2 GM OTHER IV
     Route: 042
     Dates: start: 20091203, end: 20091223
  3. NAFCILLIN [Suspect]
     Indication: UPPER RESPIRATORY TRACT INFECTION
     Dosage: 2 GM OTHER IV
     Route: 042
     Dates: start: 20091203, end: 20091223

REACTIONS (9)
  - BLOOD CREATININE INCREASED [None]
  - DEVICE RELATED INFECTION [None]
  - ENTEROCOCCAL INFECTION [None]
  - KLEBSIELLA INFECTION [None]
  - MULTIPLE-DRUG RESISTANCE [None]
  - PANCYTOPENIA [None]
  - PSEUDOMONAS INFECTION [None]
  - SEPSIS [None]
  - URINARY TRACT INFECTION [None]
